FAERS Safety Report 17679321 (Version 1)
Quarter: 2020Q2

REPORT INFORMATION
  Report Type: Spontaneous
  Country: US (occurrence: US)
  Receive Date: 20200416
  Receipt Date: 20200416
  Transmission Date: 20200714
  Serious: Yes (Other)
  Sender: FDA-Public Use
  Company Number: None

PATIENT
  Age: 84 Year
  Sex: Male
  Weight: 99.34 kg

DRUGS (10)
  1. ZANAFLEX [Suspect]
     Active Substance: TIZANIDINE HYDROCHLORIDE
     Indication: MUSCLE SPASMS
     Route: 048
     Dates: start: 20200416, end: 20200416
  2. ALLOPURINOL. [Concomitant]
     Active Substance: ALLOPURINOL
  3. TOPROL EX [Concomitant]
  4. AMLODIPINE [Concomitant]
     Active Substance: AMLODIPINE BESYLATE
  5. ATORVASTATIN [Concomitant]
     Active Substance: ATORVASTATIN
  6. NSAIDS [Concomitant]
     Active Substance: UNSPECIFIED INGREDIENT
  7. DIAZIDE [Concomitant]
  8. ASA [Concomitant]
     Active Substance: ASPIRIN
  9. TIZANIDINE. [Concomitant]
     Active Substance: TIZANIDINE
  10. IBUPROFEN. [Concomitant]
     Active Substance: IBUPROFEN

REACTIONS (5)
  - Fatigue [None]
  - Vision blurred [None]
  - Disorientation [None]
  - Dry mouth [None]
  - Hallucination [None]

NARRATIVE: CASE EVENT DATE: 20200416
